FAERS Safety Report 11405275 (Version 4)
Quarter: 2015Q4

REPORT INFORMATION
  Report Type: Spontaneous
  Country: JP (occurrence: JP)
  Receive Date: 20150821
  Receipt Date: 20151022
  Transmission Date: 20160304
  Serious: Yes (Death, Life-Threatening)
  Sender: FDA-Public Use
  Company Number: JP-MALLINCKRODT-T201503941

PATIENT
  Age: 89 Year
  Sex: Male
  Weight: 49 kg

DRUGS (1)
  1. OPTIRAY 320 [Suspect]
     Active Substance: IOVERSOL
     Indication: COMPUTERISED TOMOGRAM
     Dosage: 95 ML, SINGLE
     Route: 042
     Dates: start: 20150811, end: 20150811

REACTIONS (7)
  - Erythema [Recovered/Resolved]
  - Disease progression [Fatal]
  - Sneezing [Recovered/Resolved]
  - Asthma [Recovered/Resolved]
  - Pruritus [Recovered/Resolved]
  - Musculoskeletal stiffness [Recovered/Resolved]
  - Anaphylactic shock [Recovered/Resolved]

NARRATIVE: CASE EVENT DATE: 20150811
